FAERS Safety Report 4970319-4 (Version None)
Quarter: 2006Q2

REPORT INFORMATION
  Report Type: 
  Country: None (occurrence: None)
  Receive Date: 20060412
  Receipt Date: 20060323
  Transmission Date: 20061013
  Serious: Yes (Hospitalization, Other)
  Sender: FDA-Public Use
  Company Number: PHBS2006JP04529

PATIENT
  Age: 78 Year
  Sex: Female

DRUGS (7)
  1. TEGRETOL [Suspect]
     Indication: PAIN IN EXTREMITY
     Dosage: 200 MG, QD
     Route: 048
     Dates: start: 20051201, end: 20060322
  2. PL GRAN. [Concomitant]
     Indication: NASOPHARYNGITIS
     Route: 048
  3. GASTER [Concomitant]
     Dosage: 2 DF/DAY
     Route: 048
     Dates: start: 20010101
  4. LOXONIN [Concomitant]
     Dosage: 2 DF/DAY
     Route: 048
     Dates: end: 20060322
  5. MUCOSTA [Concomitant]
     Dosage: 2 DF/DAY
     Route: 048
     Dates: end: 20060322
  6. POLLAKISU [Concomitant]
     Dosage: 3 DF/DAY
     Route: 048
  7. DEPAS [Concomitant]
     Dosage: 1 DF/DAY
     Route: 048

REACTIONS (2)
  - DRUG LEVEL INCREASED [None]
  - LOSS OF CONSCIOUSNESS [None]
